FAERS Safety Report 23118930 (Version 1)
Quarter: 2023Q4

REPORT INFORMATION
  Report Type: Spontaneous
  Country: FR (occurrence: FR)
  Receive Date: 20231028
  Receipt Date: 20231028
  Transmission Date: 20240110
  Serious: Yes (Hospitalization, Other)
  Sender: FDA-Public Use
  Company Number: FR-Axellia-004926

PATIENT
  Age: 45 Year
  Sex: Female

DRUGS (4)
  1. VANCOMYCIN [Suspect]
     Active Substance: VANCOMYCIN
     Indication: Enterobacter infection
  2. MEROPENEM [Concomitant]
     Active Substance: MEROPENEM
     Indication: Enterobacter infection
  3. VANCOMYCIN [Suspect]
     Active Substance: VANCOMYCIN
     Indication: Device related infection
  4. MEROPENEM [Concomitant]
     Active Substance: MEROPENEM
     Indication: Device related infection

REACTIONS (3)
  - Vancomycin infusion reaction [Unknown]
  - Renal failure [Unknown]
  - Drug level increased [Unknown]
